FAERS Safety Report 6712725-3 (Version None)
Quarter: 2010Q2

REPORT INFORMATION
  Report Type: 
  Country: None (occurrence: None)
  Receive Date: 20100505
  Receipt Date: 20100505
  Transmission Date: 20101027
  Serious: No
  Sender: FDA-Public Use
  Company Number: None

PATIENT
  Age: 44 Year
  Sex: Male
  Weight: 86.1834 kg

DRUGS (2)
  1. ZOLPIDEM TARTRATE [Suspect]
     Indication: INSOMNIA
     Dosage: 10MG OR LESS PRN BEDTIME/SLEEPT PO; ONE-5MG DOSING ; ONE {5MG DOSING
     Route: 048
     Dates: start: 20100401, end: 20100430
  2. ZOLPIDEM TARTRATE [Suspect]
     Indication: INSOMNIA
     Dosage: 10MG OR LESS PRN BEDTIME/SLEEPT PO; ONE-5MG DOSING ; ONE {5MG DOSING
     Route: 048
     Dates: start: 20100503, end: 20100504

REACTIONS (4)
  - ALTERED STATE OF CONSCIOUSNESS [None]
  - DECREASED ACTIVITY [None]
  - HANGOVER [None]
  - PRODUCT SUBSTITUTION ISSUE [None]
